FAERS Safety Report 8548265-9 (Version None)
Quarter: 2012Q3

REPORT INFORMATION
  Report Type: 
  Country: None (occurrence: None)
  Receive Date: 20120730
  Receipt Date: 20120718
  Transmission Date: 20120928
  Serious: Yes (Hospitalization)
  Sender: FDA-Public Use
  Company Number: CA-JNJFOC-20120708745

PATIENT
  Sex: Female
  Weight: 152.5 kg

DRUGS (1)
  1. STELARA [Suspect]
     Indication: PSORIASIS
     Route: 058
     Dates: start: 20110901

REACTIONS (2)
  - CARDIAC FAILURE CONGESTIVE [None]
  - CHEST PAIN [None]
